FAERS Safety Report 10490033 (Version 1)
Quarter: 2014Q4

REPORT INFORMATION
  Report Type: Other
  Country: ES (occurrence: ES)
  Receive Date: 20141002
  Receipt Date: 20141002
  Transmission Date: 20150528
  Serious: Yes (Other)
  Sender: FDA-Public Use
  Company Number: ES-MYLANLABS-2014M1004373

PATIENT

DRUGS (2)
  1. LEVETIRACETAM 500 MG COMPRIMIDOS RECUBIERTOS CON PEL?CULA [Suspect]
     Active Substance: LEVETIRACETAM
     Indication: IDIOPATHIC GENERALISED EPILEPSY
     Dosage: 750 MG, BID
     Route: 048
     Dates: start: 20140608, end: 201408
  2. KEPPRA 500 MG COMPRIMIDOS RECUBIERTOS CON PELICULA, 60 COMPRIMIDOS [Concomitant]
     Indication: IDIOPATHIC GENERALISED EPILEPSY
     Dosage: 750 MG, BID
     Route: 048
     Dates: end: 20140607

REACTIONS (3)
  - Medication error [Recovered/Resolved]
  - Generalised tonic-clonic seizure [Recovered/Resolved]
  - Product substitution issue [Recovered/Resolved]

NARRATIVE: CASE EVENT DATE: 20140608
